FAERS Safety Report 9399748 (Version 6)
Quarter: 2015Q2

REPORT INFORMATION
  Report Type: Spontaneous
  Country: US (occurrence: US)
  Receive Date: 20130715
  Receipt Date: 20150520
  Transmission Date: 20150821
  Serious: Yes (Hospitalization, Other)
  Sender: FDA-Public Use
  Company Number: US-BAYER-2013-083720

PATIENT
  Age: 33 Year
  Sex: Female
  Weight: 64.85 kg

DRUGS (3)
  1. NASONEX [Concomitant]
     Active Substance: MOMETASONE FUROATE
     Dosage: 50 MCG; 2 SPRAYS DAILY
     Route: 045
  2. CLARITIN [Concomitant]
     Active Substance: LORATADINE
     Dosage: 10 MG, QD
     Route: 048
  3. MIRENA [Suspect]
     Active Substance: LEVONORGESTREL
     Indication: CONTRACEPTION
     Dosage: 20 MCG/24HR, CONT
     Route: 015
     Dates: start: 200911, end: 20130510

REACTIONS (13)
  - Discomfort [None]
  - Anxiety [None]
  - Emotional distress [None]
  - Embedded device [None]
  - Bowel movement irregularity [None]
  - Abdominal pain [None]
  - Coital bleeding [None]
  - Genital haemorrhage [None]
  - Pain [None]
  - Device dislocation [None]
  - Depression [None]
  - Injury [None]
  - Procedural pain [None]

NARRATIVE: CASE EVENT DATE: 2013
